FAERS Safety Report 6834901-1 (Version None)
Quarter: 2010Q3

REPORT INFORMATION
  Report Type: 
  Country: None (occurrence: None)
  Receive Date: 20100712
  Receipt Date: 20070707
  Transmission Date: 20110219
  Serious: No
  Sender: FDA-Public Use
  Company Number: US-PFIZER INC-2007034442

PATIENT
  Sex: Female
  Weight: 45.5 kg

DRUGS (7)
  1. CHANTIX [Suspect]
     Indication: SMOKING CESSATION THERAPY
     Dates: start: 20070401
  2. ARICEPT [Concomitant]
  3. TOPROL-XL [Concomitant]
  4. VITAMIN B-12 [Concomitant]
  5. BENICAR [Concomitant]
  6. NORVASC [Concomitant]
  7. SIMVASTATIN [Concomitant]

REACTIONS (2)
  - DRUG INEFFECTIVE [None]
  - HEADACHE [None]
